FAERS Safety Report 21297490 (Version 1)
Quarter: 2022Q3

REPORT INFORMATION
  Report Type: Spontaneous
  Country: US (occurrence: US)
  Receive Date: 20220906
  Receipt Date: 20220906
  Transmission Date: 20221026
  Serious: No
  Sender: FDA-Public Use
  Company Number: US-BRISTOL-MYERS SQUIBB COMPANY-2022-101052

PATIENT
  Age: 52 Year
  Sex: Male
  Weight: 73.48 kg

DRUGS (1)
  1. POMALYST [Suspect]
     Active Substance: POMALIDOMIDE
     Indication: Skin cancer
     Dosage: DOSE : 5MG;     FREQ : ONCE A DAY EVERY DAY
     Route: 048
     Dates: start: 20220829

REACTIONS (4)
  - Pruritus [Unknown]
  - Pyrexia [Unknown]
  - Swelling face [Unknown]
  - Intentional product use issue [Unknown]

NARRATIVE: CASE EVENT DATE: 20220829
